FAERS Safety Report 18201750 (Version 1)
Quarter: 2020Q3

REPORT INFORMATION
  Report Type: Spontaneous
  Country: US (occurrence: US)
  Receive Date: 20200826
  Receipt Date: 20200826
  Transmission Date: 20201103
  Serious: No
  Sender: FDA-Public Use
  Company Number: None

PATIENT
  Age: 23 Year
  Sex: Male
  Weight: 76.5 kg

DRUGS (8)
  1. MORPHINE ER [Concomitant]
     Active Substance: MORPHINE
  2. TIZANIDINE. [Concomitant]
     Active Substance: TIZANIDINE
  3. OXYMORPHONE IR [Concomitant]
     Active Substance: OXYMORPHONE
  4. TIZANIDINE. [Concomitant]
     Active Substance: TIZANIDINE
  5. VITAMIN C [Concomitant]
     Active Substance: ASCORBIC ACID
  6. ZOFRAN [Concomitant]
     Active Substance: ONDANSETRON HYDROCHLORIDE
  7. BISOPROLOL [Concomitant]
     Active Substance: BISOPROLOL
  8. CLONAZEPAM 0.5 MG DIS TABLET PAR PH [Suspect]
     Active Substance: CLONAZEPAM
     Indication: ANXIETY
     Dosage: ?          QUANTITY:1 TABLET(S);?
     Route: 060
     Dates: start: 20200823, end: 20200826

REACTIONS (7)
  - Product substitution issue [None]
  - Product formulation issue [None]
  - Depression [None]
  - Suicidal ideation [None]
  - Product measured potency issue [None]
  - Anxiety [None]
  - Withdrawal syndrome [None]

NARRATIVE: CASE EVENT DATE: 20200826
